FAERS Safety Report 5728910-3 (Version None)
Quarter: 2008Q2

REPORT INFORMATION
  Report Type: 
  Country: None (occurrence: None)
  Receive Date: 20080506
  Receipt Date: 20080428
  Transmission Date: 20081010
  Serious: No
  Sender: FDA-Public Use
  Company Number: JP-AVENTIS-200811282JP

PATIENT
  Age: 68 Year
  Sex: Male
  Weight: 65 kg

DRUGS (5)
  1. AMARYL [Suspect]
     Indication: DIABETES MELLITUS
     Route: 048
     Dates: start: 20080325, end: 20080408
  2. METHYCOBAL                         /00056201/ [Concomitant]
     Indication: DIABETES MELLITUS
     Dosage: DOSE: 1TBLS X 3/DAY
     Route: 048
  3. GLUTAMEAL [Concomitant]
     Indication: DIABETES MELLITUS
     Dates: start: 20080226, end: 20080303
  4. ACTOS [Concomitant]
     Indication: DIABETES MELLITUS
     Dates: start: 20080226, end: 20080303
  5. INNOLET [Concomitant]
     Indication: DIABETES MELLITUS
     Dates: start: 20080303, end: 20080324

REACTIONS (2)
  - OEDEMA [None]
  - WEIGHT INCREASED [None]
